FAERS Safety Report 7997004-9 (Version None)
Quarter: 2011Q4

REPORT INFORMATION
  Report Type: 
  Country: None (occurrence: None)
  Receive Date: 20111221
  Receipt Date: 20111214
  Transmission Date: 20120403
  Serious: Yes (Hospitalization)
  Sender: FDA-Public Use
  Company Number: US-US-EMD SERONO, INC.-7101845

PATIENT
  Sex: Female
  Weight: 59 kg

DRUGS (6)
  1. TRUVADA [Concomitant]
     Indication: HIV INFECTION
  2. VITAMIN B-12 [Concomitant]
     Indication: HIV INFECTION
  3. INTELLIENCE [Concomitant]
     Indication: HIV INFECTION
  4. SEROSTIM [Suspect]
     Indication: HIV WASTING SYNDROME
  5. ISCENTRESS [Concomitant]
     Indication: HIV INFECTION
  6. TESTOSTERONE [Concomitant]
     Indication: HIV INFECTION

REACTIONS (1)
  - NASOPHARYNGITIS [None]
